FAERS Safety Report 6597140-8 (Version None)
Quarter: 2010Q1

REPORT INFORMATION
  Report Type: 
  Country: None (occurrence: None)
  Receive Date: 20100223
  Receipt Date: 20100211
  Transmission Date: 20100710
  Serious: Yes (Other)
  Sender: FDA-Public Use
  Company Number: US-WYE-H13504010

PATIENT
  Sex: Male
  Weight: 77.18 kg

DRUGS (1)
  1. PRISTIQ [Suspect]
     Indication: DEPRESSION
     Dosage: 50 MG EVERY 1 TOT
     Route: 048
     Dates: start: 20100208, end: 20100208

REACTIONS (6)
  - ABNORMAL BEHAVIOUR [None]
  - ANXIETY [None]
  - IMPAIRED DRIVING ABILITY [None]
  - MENTAL IMPAIRMENT [None]
  - SUICIDAL IDEATION [None]
  - TREMOR [None]
